FAERS Safety Report 21498894 (Version 1)
Quarter: 2022Q4

REPORT INFORMATION
  Report Type: Spontaneous
  Country: US (occurrence: US)
  Receive Date: 20221024
  Receipt Date: 20221024
  Transmission Date: 20230113
  Serious: Yes (Other)
  Sender: FDA-Public Use
  Company Number: US-NOVARTISPH-NVSC2022US238367

PATIENT
  Age: 53 Year
  Sex: Male
  Weight: 32.2 kg

DRUGS (1)
  1. TASIGNA [Suspect]
     Active Substance: NILOTINIB
     Indication: Product used for unknown indication
     Dosage: UNK
     Route: 065
     Dates: start: 201305, end: 201901

REACTIONS (7)
  - Type 2 diabetes mellitus [Unknown]
  - Renal failure [Not Recovered/Not Resolved]
  - Blindness [Not Recovered/Not Resolved]
  - Diabetic retinopathy [Unknown]
  - Asthenopia [Unknown]
  - Anaemia [Unknown]
  - Platelet count decreased [Unknown]

NARRATIVE: CASE EVENT DATE: 20150101
